FAERS Safety Report 20704137 (Version 1)
Quarter: 2022Q2

REPORT INFORMATION
  Report Type: Spontaneous
  Country: DK (occurrence: DK)
  Receive Date: 20220413
  Receipt Date: 20220413
  Transmission Date: 20220720
  Serious: Yes (Hospitalization, Other)
  Sender: FDA-Public Use
  Company Number: None

PATIENT
  Age: 51 Year
  Sex: Female
  Weight: 100 kg

DRUGS (2)
  1. AUBAGIO [Suspect]
     Active Substance: TERIFLUNOMIDE
     Indication: Multiple sclerosis
     Dosage: 14 MG, QD
     Route: 048
     Dates: start: 2015, end: 20220316
  2. QUESTRAN [Suspect]
     Active Substance: CHOLESTYRAMINE
     Indication: Drug therapy
     Dosage: 24 G, QD
     Route: 048
     Dates: start: 20220318, end: 20220324

REACTIONS (7)
  - Cholecystitis acute [Recovered/Resolved]
  - Gallbladder necrosis [Recovered/Resolved]
  - Gallbladder enlargement [Recovered/Resolved]
  - Constipation [Unknown]
  - Cholelithiasis [Recovered/Resolved]
  - Abdominal pain [Unknown]
  - Nausea [Unknown]

NARRATIVE: CASE EVENT DATE: 20220319
